FAERS Safety Report 6587794-4 (Version None)
Quarter: 2010Q1

REPORT INFORMATION
  Report Type: 
  Country: None (occurrence: None)
  Receive Date: 20100217
  Receipt Date: 20100217
  Transmission Date: 20100710
  Serious: Yes (Hospitalization)
  Sender: FDA-Public Use
  Company Number: None

PATIENT
  Age: 31 Year
  Sex: Female

DRUGS (7)
  1. MACROBID [Suspect]
     Indication: URINARY TRACT INFECTION
     Dosage: 100MG DAILY PO
     Route: 048
  2. PROVENTIL [Concomitant]
  3. FLOVENT [Concomitant]
  4. SEREVENT [Concomitant]
  5. FENOPROFEN CALCIUM [Concomitant]
  6. VICODIN [Concomitant]
  7. SOMA [Concomitant]

REACTIONS (2)
  - ACUTE RESPIRATORY FAILURE [None]
  - PNEUMONITIS [None]
